FAERS Safety Report 4878161-X (Version None)
Quarter: 2005Q4

REPORT INFORMATION
  Report Type: 
  Country: None (occurrence: None)
  Receive Date: 20051209
  Receipt Date: 20050718
  Transmission Date: 20060501
  Serious: Yes (Other)
  Sender: FDA-Public Use
  Company Number: USA-2005-0020789

PATIENT
  Age: 35 Year
  Sex: Male

DRUGS (1)
  1. OXYCONTIN [Suspect]
     Indication: PAIN
     Dosage: 80 MG, 8-10 TABLETS PER DAY, ORAL
     Route: 048

REACTIONS (3)
  - DRUG ABUSER [None]
  - PAIN [None]
  - SOMNOLENCE [None]
